FAERS Safety Report 8973173 (Version 2)
Quarter: 2014Q3

REPORT INFORMATION
  Report Type: Spontaneous
  Country: US (occurrence: US)
  Receive Date: 20121218
  Receipt Date: 20140828
  Transmission Date: 20150326
  Serious: Yes (Hospitalization, Other)
  Sender: FDA-Public Use
  Company Number: US-009507513-2010SP007773

PATIENT
  Sex: Female
  Weight: 95.26 kg

DRUGS (1)
  1. NUVARING [Suspect]
     Active Substance: ETHINYL ESTRADIOL\ETONOGESTREL
     Indication: CONTRACEPTION
     Dates: start: 2003, end: 200407

REACTIONS (11)
  - Endometriosis [Unknown]
  - Pelvic pain [Unknown]
  - Hypertension [Unknown]
  - Pulmonary embolism [Recovered/Resolved]
  - Menorrhagia [Unknown]
  - Foot deformity [Unknown]
  - Diabetes mellitus [Unknown]
  - Paraesthesia [Unknown]
  - Hyperlipidaemia [Unknown]
  - Chest pain [Unknown]
  - Headache [Unknown]

NARRATIVE: CASE EVENT DATE: 20040714
